FAERS Safety Report 9343723 (Version 1)
Quarter: 2013Q2

REPORT INFORMATION
  Report Type: Spontaneous
  Country: IT (occurrence: None)
  Receive Date: 20130610
  Receipt Date: 20130610
  Transmission Date: 20140414
  Serious: Yes (Hospitalization)
  Sender: FDA-Public Use
  Company Number: 1737565

PATIENT
  Age: 32 Year
  Sex: Female
  Weight: 61 kg

DRUGS (3)
  1. CYTARABINE [Suspect]
     Indication: LYMPHADENOPATHY
     Dosage: 3000 MG MILLIGRAM(S), (CYCLICAL) INTRAVANEOUS DRIP
     Route: 041
     Dates: start: 20130105, end: 20130206
  2. ETOPOSIDE [Suspect]
     Indication: LYMPHADENOPATHY
     Dosage: 150 MG MILLIGRAM(S) (CYCLICAL) INTRAVENOS DRIP
     Route: 041
     Dates: start: 20130105, end: 20130207
  3. CARBOPLATINO [Suspect]
     Indication: LYMPHADENOPATHY
     Dosage: 600 MG MILLIGRAM(S) (CYCLICAL) INTRAVENOUS DRIP
     Route: 041
     Dates: start: 20130105, end: 20130205

REACTIONS (3)
  - Febrile neutropenia [None]
  - Anaemia of malignant disease [None]
  - Thrombocytopenia [None]
